FAERS Safety Report 6235517-0 (Version None)
Quarter: 2009Q2

REPORT INFORMATION
  Report Type: 
  Country: None (occurrence: None)
  Receive Date: 20090618
  Receipt Date: 20080723
  Transmission Date: 20091009
  Serious: No
  Sender: FDA-Public Use
  Company Number: US-ASTRAZENECA-2008UW15266

PATIENT
  Age: 63 Year
  Sex: Female

DRUGS (3)
  1. RHINOCORT [Suspect]
     Indication: RHINORRHOEA
     Dosage: 32 MCG 120 METER SPRAY/UNIT
     Route: 045
  2. DUONEB [Concomitant]
  3. ZITHROMAX [Concomitant]

REACTIONS (3)
  - NASAL DISCOMFORT [None]
  - RETCHING [None]
  - WHEEZING [None]
